FAERS Safety Report 22593482 (Version 1)
Quarter: 2023Q2

REPORT INFORMATION
  Report Type: Spontaneous
  Country: US (occurrence: US)
  Receive Date: 20230613
  Receipt Date: 20230613
  Transmission Date: 20230721
  Serious: Yes (Hospitalization, Other)
  Sender: FDA-Public Use
  Company Number: US-GENZYME-POMP-1000218

PATIENT
  Age: 12 Year
  Sex: Male

DRUGS (2)
  1. ALGLUCOSIDASE ALFA [Suspect]
     Active Substance: ALGLUCOSIDASE ALFA
     Indication: Glycogen storage disease type II
     Dosage: 20 MG/KG, QOW
     Route: 042
     Dates: start: 20070418
  2. DOXYCYCLINE [Concomitant]
     Active Substance: DOXYCYCLINE
     Indication: Rocky mountain spotted fever
     Dosage: UNK
     Dates: start: 20080619

REACTIONS (19)
  - Syncope [Recovered/Resolved]
  - Supraventricular tachycardia [Recovered/Resolved]
  - Loss of consciousness [Unknown]
  - Muscular weakness [Unknown]
  - Dehydration [Unknown]
  - Pain in extremity [Unknown]
  - Dyspnoea [Unknown]
  - Eye movement disorder [Unknown]
  - Decreased appetite [Unknown]
  - Gait disturbance [Unknown]
  - Ocular hyperaemia [Unknown]
  - Fluid intake reduced [Unknown]
  - Hypoaesthesia [Unknown]
  - Lip swelling [Unknown]
  - Fatigue [Unknown]
  - Chest pain [Unknown]
  - Arthralgia [Unknown]
  - Rash [Recovered/Resolved]
  - Heart rate increased [Unknown]

NARRATIVE: CASE EVENT DATE: 20080618
